FAERS Safety Report 7370352-1 (Version None)
Quarter: 2011Q1

REPORT INFORMATION
  Report Type: 
  Country: None (occurrence: None)
  Receive Date: 20110323
  Receipt Date: 20110314
  Transmission Date: 20110831
  Serious: Yes (Other)
  Sender: FDA-Public Use
  Company Number: US-ASTRAZENECA-2011SE14115

PATIENT
  Sex: Male

DRUGS (6)
  1. SEROQUEL XR [Suspect]
     Indication: BIPOLAR I DISORDER
     Dosage: 4540 MILLIGRAM
     Route: 048
     Dates: start: 20100501
  2. SEROQUEL XR [Suspect]
     Route: 048
  3. SEROQUEL XR [Suspect]
     Indication: ANXIETY
     Dosage: 4540 MILLIGRAM
     Route: 048
     Dates: start: 20100501
  4. SEROQUEL XR [Suspect]
     Indication: SCHIZOPHRENIA
     Dosage: 4540 MILLIGRAM
     Route: 048
     Dates: start: 20100501
  5. SEROQUEL XR [Suspect]
     Route: 048
  6. SEROQUEL XR [Suspect]
     Route: 048

REACTIONS (20)
  - ANXIETY [None]
  - THERAPEUTIC RESPONSE UNEXPECTED [None]
  - CONCUSSION [None]
  - MIGRAINE [None]
  - ROAD TRAFFIC ACCIDENT [None]
  - PNEUMONIA ASPIRATION [None]
  - MOOD SWINGS [None]
  - DEHYDRATION [None]
  - DIZZINESS [None]
  - ADVERSE EVENT [None]
  - ACCIDENT [None]
  - WEIGHT INCREASED [None]
  - IRRITABILITY [None]
  - SPINAL FRACTURE [None]
  - NAUSEA [None]
  - DIARRHOEA [None]
  - DEPRESSION [None]
  - INSOMNIA [None]
  - HEADACHE [None]
  - VOMITING [None]
